FAERS Safety Report 5953050-8 (Version None)
Quarter: 2008Q4

REPORT INFORMATION
  Report Type: 
  Country: None (occurrence: None)
  Receive Date: 20081114
  Receipt Date: 20081003
  Transmission Date: 20090506
  Serious: No
  Sender: FDA-Public Use
  Company Number: US-BRISTOL-MYERS SQUIBB COMPANY-14355275

PATIENT
  Age: 41 Year
  Sex: Female
  Weight: 85 kg

DRUGS (2)
  1. IXEMPRA KIT [Suspect]
     Route: 042
     Dates: start: 20080930, end: 20080930
  2. ADVIL [Concomitant]

REACTIONS (2)
  - DRUG ADMINISTRATION ERROR [None]
  - NO ADVERSE EVENT [None]
